FAERS Safety Report 7439718-5 (Version None)
Quarter: 2011Q2

REPORT INFORMATION
  Report Type: 
  Country: None (occurrence: None)
  Receive Date: 20110427
  Receipt Date: 20110415
  Transmission Date: 20111010
  Serious: Yes (Other)
  Sender: FDA-Public Use
  Company Number: PHHY2011US24423

PATIENT
  Sex: Male
  Weight: 92.517 kg

DRUGS (9)
  1. GILENYA [Suspect]
     Indication: RELAPSING-REMITTING MULTIPLE SCLEROSIS
     Dosage: 1 DF, DAILY
     Route: 048
     Dates: start: 20110218
  2. CYANOCOBALAMIN [Concomitant]
     Dosage: 1000 UG/ML, UNK
     Dates: start: 20110222
  3. FLOMAX [Concomitant]
     Dosage: UNK UKN, UNK
  4. CELEBREX [Concomitant]
     Dosage: 200 MG, UNK
     Route: 048
  5. VESICARE [Concomitant]
     Dosage: 5 MG, QD
     Route: 048
  6. ASPIRIN [Concomitant]
     Dosage: 81 MG, UNK
     Route: 048
  7. PRAVASTATIN [Concomitant]
     Dosage: 20 MG, QD
     Route: 048
  8. CYANOCOBALAMIN [Concomitant]
     Dosage: 1000 UG/ML, UNK
     Dates: start: 20110121
  9. TAMSULOSIN [Concomitant]
     Dosage: 0.4 MG, QD
     Route: 048

REACTIONS (4)
  - OEDEMA PERIPHERAL [None]
  - PARAPLEGIA [None]
  - GAIT DISTURBANCE [None]
  - SKIN DISCOLOURATION [None]
